FAERS Safety Report 5409360-6 (Version None)
Quarter: 2007Q3

REPORT INFORMATION
  Report Type: 
  Country: None (occurrence: None)
  Receive Date: 20070809
  Receipt Date: 20070730
  Transmission Date: 20080115
  Serious: Yes (Hospitalization)
  Sender: FDA-Public Use
  Company Number: US-JNJFOC-20070800312

PATIENT
  Age: 24 Year
  Sex: Male

DRUGS (3)
  1. INVEGA [Suspect]
     Indication: DEPRESSION
     Route: 048
  2. INVEGA [Suspect]
     Indication: BIPOLAR DISORDER
     Route: 048
  3. WELLBUTRIN [Concomitant]
     Indication: DEPRESSION

REACTIONS (4)
  - ABDOMINAL PAIN UPPER [None]
  - AKATHISIA [None]
  - HALLUCINATION, AUDITORY [None]
  - INSOMNIA [None]
